FAERS Safety Report 7465524-1 (Version None)
Quarter: 2011Q2

REPORT INFORMATION
  Report Type: 
  Country: None (occurrence: None)
  Receive Date: 20110509
  Receipt Date: 20110503
  Transmission Date: 20111010
  Serious: Yes (Death)
  Sender: FDA-Public Use
  Company Number: CA-ROCHE-775102

PATIENT
  Age: 50 Year
  Sex: Female

DRUGS (7)
  1. BROMAZEPAM [Suspect]
     Route: 048
  2. ACETAMINOPHEN [Suspect]
     Route: 048
  3. IBUPROFEN [Suspect]
     Route: 048
  4. CLONAZEPAM [Suspect]
     Route: 048
  5. CODEINE SULFATE [Suspect]
     Route: 048
  6. METOPROLOL TARTRATE [Suspect]
     Route: 048
  7. DIPHENHYDRAMINE HCL [Suspect]
     Route: 048

REACTIONS (2)
  - TOXICITY TO VARIOUS AGENTS [None]
  - SUBSTANCE ABUSE [None]
